FAERS Safety Report 9562786 (Version 4)
Quarter: 2014Q1

REPORT INFORMATION
  Report Type: Spontaneous
  Country: US (occurrence: US)
  Receive Date: 20130927
  Receipt Date: 20140220
  Transmission Date: 20141002
  Serious: Yes (Death, Hospitalization, Other)
  Sender: FDA-Public Use
  Company Number: US-BRISTOL-MYERS SQUIBB COMPANY-19457373

PATIENT
  Age: 52 Year
  Sex: Male
  Weight: 192.74 kg

DRUGS (9)
  1. BYETTA PEN DISPOSABLE [Suspect]
     Indication: TYPE 2 DIABETES MELLITUS
     Dates: start: 20110412, end: 20111202
  2. LEVEMIR [Concomitant]
  3. ATENOLOL [Concomitant]
  4. LASIX [Concomitant]
  5. BENADRYL [Concomitant]
  6. GABAPENTIN [Concomitant]
  7. ASPIRIN [Concomitant]
  8. DEOXYCHOLIC ACID [Concomitant]
  9. METFORMIN [Concomitant]

REACTIONS (4)
  - Pancreatic carcinoma [Fatal]
  - Incisional hernia [Unknown]
  - Pruritus [Unknown]
  - Diabetes mellitus inadequate control [Unknown]
